FAERS Safety Report 10568414 (Version 1)
Quarter: 2014Q4

REPORT INFORMATION
  Report Type: Spontaneous
  Country: FR (occurrence: FR)
  Receive Date: 20141106
  Receipt Date: 20141106
  Transmission Date: 20150529
  Serious: Yes (Hospitalization, Other)
  Sender: FDA-Public Use
  Company Number: FR-ASTRAZENECA-2014SE82714

PATIENT
  Age: 744 Month
  Sex: Male

DRUGS (2)
  1. MOPRAL [Suspect]
     Active Substance: OMEPRAZOLE SODIUM
     Route: 048
     Dates: start: 201002, end: 20140809
  2. ESIDREX [Suspect]
     Active Substance: HYDROCHLOROTHIAZIDE
     Route: 048
     Dates: start: 201310, end: 20140809

REACTIONS (6)
  - Blood creatine phosphokinase increased [Recovered/Resolved]
  - Hypomagnesaemia [Recovered/Resolved]
  - Metabolic alkalosis [Unknown]
  - Hypocalcaemia [Not Recovered/Not Resolved]
  - Hypoparathyroidism [Recovered/Resolved]
  - Hypokalaemia [Recovered/Resolved]

NARRATIVE: CASE EVENT DATE: 201401
